FAERS Safety Report 18878716 (Version 1)
Quarter: 2021Q1

REPORT INFORMATION
  Report Type: Spontaneous
  Country: US (occurrence: US)
  Receive Date: 20210211
  Receipt Date: 20210211
  Transmission Date: 20210420
  Serious: Yes (Hospitalization)
  Sender: FDA-Public Use
  Company Number: None

PATIENT
  Sex: Female

DRUGS (32)
  1. ATOVASTATIN [Concomitant]
     Active Substance: ATORVASTATIN
  2. JANUMET XR [Concomitant]
     Active Substance: METFORMIN HYDROCHLORIDE\SITAGLIPTIN PHOSPHATE
  3. MAGNESIUM?OX [Concomitant]
  4. METOPROL TAR [Concomitant]
  5. METRONIDAZOL [Concomitant]
     Active Substance: METRONIDAZOLE
  6. MONTELUKAST [Concomitant]
     Active Substance: MONTELUKAST SODIUM
  7. AZELAIC ACID. [Concomitant]
     Active Substance: AZELAIC ACID
  8. BENZONATATE. [Concomitant]
     Active Substance: BENZONATATE
  9. CYCLOBENZAPAR [Concomitant]
  10. METOLAZONE. [Concomitant]
     Active Substance: METOLAZONE
  11. OMEPRAZOLE. [Concomitant]
     Active Substance: OMEPRAZOLE
  12. CEFDINIR. [Concomitant]
     Active Substance: CEFDINIR
  13. ONDANSETRON [Concomitant]
     Active Substance: ONDANSETRON
  14. ATENOLOL. [Concomitant]
     Active Substance: ATENOLOL
  15. AZELASTINE. [Concomitant]
     Active Substance: AZELASTINE HYDROCHLORIDE
  16. ELIQUIS [Concomitant]
     Active Substance: APIXABAN
  17. URSODIOL. [Concomitant]
     Active Substance: URSODIOL
  18. BUMETANIDE. [Concomitant]
     Active Substance: BUMETANIDE
  19. BSPIRONE [Concomitant]
  20. DOXYCYCL HYC [Concomitant]
  21. HYDROCO/APAP [Concomitant]
     Active Substance: ACETAMINOPHEN\HYDROCODONE
  22. LEVOFLOXACIN. [Concomitant]
     Active Substance: LEVOFLOXACIN
  23. LIDOCAINE. [Concomitant]
     Active Substance: LIDOCAINE
  24. LOSARTAN POT [Concomitant]
     Active Substance: LOSARTAN POTASSIUM
  25. AZEL/FLUTIC SPR [Concomitant]
  26. LUMIGAN [Concomitant]
     Active Substance: BIMATOPROST
  27. FOLBEE [Concomitant]
     Active Substance: CYANOCOBALAMIN\FOLIC ACID\PYRIDOXINE HYDROCHLORIDE
  28. ROPINIROLE. [Concomitant]
     Active Substance: ROPINIROLE
  29. TRELEGY ELLIPT [Concomitant]
  30. ESBRIET [Suspect]
     Active Substance: PIRFENIDONE
     Indication: IDIOPATHIC PULMONARY FIBROSIS
     Route: 048
     Dates: start: 20181006
  31. DIGOXIN. [Concomitant]
     Active Substance: DIGOXIN
  32. MULTAQ [Concomitant]
     Active Substance: DRONEDARONE

REACTIONS (2)
  - Heart rate abnormal [None]
  - Pneumonia [None]
